FAERS Safety Report 8111921-0 (Version None)
Quarter: 2012Q1

REPORT INFORMATION
  Report Type: 
  Country: None (occurrence: None)
  Receive Date: 20120203
  Receipt Date: 20110502
  Transmission Date: 20120608
  Serious: No
  Sender: FDA-Public Use
  Company Number: US-GLAXOSMITHKLINE-A0925334A

PATIENT
  Age: 33 Year
  Sex: Female

DRUGS (11)
  1. ASTEPRO [Concomitant]
  2. VERAMYST [Concomitant]
  3. LUNESTA [Concomitant]
  4. PROAIR HFA [Concomitant]
  5. VITAMIN TAB [Concomitant]
  6. CYMBALTA [Concomitant]
  7. FOLIC ACID [Concomitant]
  8. LORAZEPAM [Concomitant]
  9. ARIXTRA [Suspect]
     Indication: DEEP VEIN THROMBOSIS
     Dosage: 2.5MG PER DAY
     Route: 058
     Dates: start: 20100901
  10. METFORMIN HCL [Concomitant]
  11. ADVAIR DISKUS 100/50 [Concomitant]

REACTIONS (2)
  - INJECTION SITE SWELLING [None]
  - INJECTION SITE HAEMATOMA [None]
